FAERS Safety Report 8369218-X (Version None)
Quarter: 2012Q2

REPORT INFORMATION
  Report Type: 
  Country: None (occurrence: None)
  Receive Date: 20120518
  Receipt Date: 20120510
  Transmission Date: 20120825
  Serious: Yes (Other)
  Sender: FDA-Public Use
  Company Number: PH-ELI_LILLY_AND_COMPANY-PH201205004528

PATIENT
  Sex: Female

DRUGS (8)
  1. RALOXIFENE HYDROCHLORIDE [Suspect]
     Indication: OSTEOPOROSIS POSTMENOPAUSAL
     Dosage: 60 MG, QD
     Route: 048
     Dates: start: 20011111
  2. FENOFIBRATE [Concomitant]
     Dosage: 160 MG, QD
  3. GLUCOSAMINE [Concomitant]
     Dosage: 500 MG, BID
  4. VITAMIN D [Concomitant]
     Dosage: 1 DF, BID
  5. FISH OIL [Concomitant]
     Dosage: 1000 IU, BID
  6. ESTRADIOL [Concomitant]
     Dosage: 1 DF, 2/W
     Route: 067
  7. FLAXSEED OIL [Concomitant]
     Dosage: 1 DF, BID
  8. CALCIUM ASCORBATE [Concomitant]
     Dosage: 1 DF, BID

REACTIONS (3)
  - ENDOMETRIAL CANCER [None]
  - HIP FRACTURE [None]
  - CERVICAL POLYP [None]
